FAERS Safety Report 5270587-8 (Version None)
Quarter: 2007Q1

REPORT INFORMATION
  Report Type: 
  Country: None (occurrence: None)
  Receive Date: 20070315
  Receipt Date: 20070308
  Transmission Date: 20070707
  Serious: Yes (Hospitalization)
  Sender: FDA-Public Use
  Company Number: JPI-P-000276

PATIENT
  Age: 58 Year
  Sex: Female

DRUGS (6)
  1. XYREM [Suspect]
     Indication: NARCOLEPSY
     Dosage: SEE IMAGE
     Route: 048
     Dates: start: 20060927
  2. CYMBALTA [Concomitant]
  3. ZONEGRAN [Concomitant]
  4. ADVAIR (SERETIDE /01420901/) [Concomitant]
  5. ALBUTEROL [Concomitant]
  6. SYNTHROID [Concomitant]

REACTIONS (4)
  - DEPRESSED LEVEL OF CONSCIOUSNESS [None]
  - INTENTIONAL OVERDOSE [None]
  - RESPIRATORY ARREST [None]
  - SUICIDE ATTEMPT [None]
